FAERS Safety Report 4619521-1 (Version None)
Quarter: 2005Q1

REPORT INFORMATION
  Report Type: 
  Country: None (occurrence: None)
  Receive Date: 20050318
  Receipt Date: 20050318
  Transmission Date: 20050727
  Serious: Yes (Hospitalization)
  Sender: FDA-Public Use
  Company Number: None

PATIENT
  Sex: Female
  Weight: 60.3284 kg

DRUGS (14)
  1. DIOVAN [Suspect]
     Indication: HYPERTENSION
     Dosage: 320 MG PO QD [PRIOR TO ADMISSION]
     Route: 048
  2. LASIX [Suspect]
     Indication: HYPERTENSION
     Dosage: 40 MG PO QD  [PRIOR TO ADMISSION]
     Route: 048
  3. CAPOTEN [Suspect]
     Indication: CORONARY ARTERY DISEASE
     Dosage: 100 MG PO BID [PRIOR TO ADMISSION]
     Route: 048
  4. ZAROXOLYN [Suspect]
     Indication: CORONARY ARTERY DISEASE
     Dosage: 2.5 MG PO QD  [PRIOR TO ADMISSION]
     Route: 048
  5. AVANDIA [Concomitant]
  6. POTASSIUM CHLORIDE [Concomitant]
  7. PREDNISONE [Concomitant]
  8. IMDUR [Concomitant]
  9. METOPROLOL TARTRATE [Concomitant]
  10. PRECOSE [Concomitant]
  11. THYROID TAB [Concomitant]
  12. PRAVACHOL [Concomitant]
  13. NORVASC [Concomitant]
  14. ALDOMET [Concomitant]

REACTIONS (5)
  - ASTHENIA [None]
  - DIZZINESS [None]
  - MALAISE [None]
  - OEDEMA PERIPHERAL [None]
  - RENAL FAILURE ACUTE [None]
